FAERS Safety Report 12914159 (Version 3)
Quarter: 2018Q3

REPORT INFORMATION
  Report Type: Spontaneous
  Country: US (occurrence: US)
  Receive Date: 20161106
  Receipt Date: 20180831
  Transmission Date: 20181010
  Serious: Yes (Other)
  Sender: FDA-Public Use
  Company Number: US-ASTRAZENECA-2016SF14004

PATIENT
  Age: 721 Month
  Sex: Female
  Weight: 65.3 kg

DRUGS (37)
  1. NEXIUM [Suspect]
     Active Substance: ESOMEPRAZOLE MAGNESIUM
     Indication: DYSPEPSIA
     Route: 048
     Dates: start: 200201, end: 201212
  2. NEXIUM [Suspect]
     Active Substance: ESOMEPRAZOLE MAGNESIUM
     Indication: GASTROOESOPHAGEAL REFLUX DISEASE
     Route: 048
     Dates: start: 20090916
  3. ZEGERID [Suspect]
     Active Substance: OMEPRAZOLE\SODIUM BICARBONATE
     Route: 065
  4. CLEOCIN [Concomitant]
     Active Substance: CLINDAMYCIN PHOSPHATE
     Indication: INFECTION
     Dates: start: 201305
  5. PREVACID [Suspect]
     Active Substance: LANSOPRAZOLE
     Route: 065
  6. HYDROCHLOROTHIAZIDE. [Concomitant]
     Active Substance: HYDROCHLOROTHIAZIDE
     Dosage: 1 TAB DAILY
     Route: 048
  7. ALPRAZOLAM. [Concomitant]
     Active Substance: ALPRAZOLAM
     Indication: ANXIETY
     Dosage: 0.5 RUG TABLET 1 TAB DAILY
     Route: 048
     Dates: start: 200606
  8. LESCOL [Concomitant]
     Active Substance: FLUVASTATIN SODIUM
     Indication: BLOOD CHOLESTEROL
     Dates: start: 201001
  9. NEXIUM [Suspect]
     Active Substance: ESOMEPRAZOLE MAGNESIUM
     Indication: DYSPEPSIA
     Route: 048
     Dates: start: 200108
  10. PROTONIX [Suspect]
     Active Substance: PANTOPRAZOLE SODIUM
     Route: 065
  11. PREDNISONE. [Concomitant]
     Active Substance: PREDNISONE
  12. ARMOUR THYROID [Concomitant]
     Active Substance: THYROID, PORCINE
  13. NEXIUM [Suspect]
     Active Substance: ESOMEPRAZOLE MAGNESIUM
     Indication: GASTROOESOPHAGEAL REFLUX DISEASE
     Route: 048
     Dates: start: 200201, end: 201212
  14. NEXIUM [Suspect]
     Active Substance: ESOMEPRAZOLE MAGNESIUM
     Indication: DYSPEPSIA
     Dosage: GENERIC
     Route: 065
     Dates: start: 200201, end: 201212
  15. NEXIUM [Suspect]
     Active Substance: ESOMEPRAZOLE MAGNESIUM
     Indication: DYSPEPSIA
     Route: 048
     Dates: start: 20090916
  16. CORTISONE [Concomitant]
     Active Substance: CORTISONE\HYDROCORTISONE
  17. METHOTREXATE. [Concomitant]
     Active Substance: METHOTREXATE
     Indication: RHEUMATOID ARTHRITIS
     Dosage: 2.5 MG TAB 7 TABS ONCE A WEEK
     Route: 048
  18. ZELNORM [Concomitant]
     Active Substance: TEGASEROD MALEATE
     Indication: IRRITABLE BOWEL SYNDROME
     Dates: start: 200610
  19. BIAFINE [Concomitant]
     Active Substance: TROLAMINE
     Indication: INFECTION
     Dates: start: 201106
  20. NEXIUM [Suspect]
     Active Substance: ESOMEPRAZOLE MAGNESIUM
     Indication: GASTROOESOPHAGEAL REFLUX DISEASE
     Dosage: GENERIC
     Route: 065
     Dates: start: 200201, end: 201212
  21. NEXIUM [Suspect]
     Active Substance: ESOMEPRAZOLE MAGNESIUM
     Indication: DYSPEPSIA
     Route: 048
     Dates: start: 200505
  22. FOLIC ACID. [Concomitant]
     Active Substance: FOLIC ACID
     Indication: OSTEOPENIA
     Dosage: 1 MG TAB 1 TAB DAILY
     Route: 048
  23. ASPIRIN. [Concomitant]
     Active Substance: ASPIRIN
  24. BACTROBAN [Concomitant]
     Active Substance: MUPIROCIN\MUPIROCIN CALCIUM
     Indication: INFECTION
     Dates: start: 201305
  25. CIPRO [Concomitant]
     Active Substance: CIPROFLOXACIN HYDROCHLORIDE
     Indication: INFECTION
     Dates: start: 201307
  26. VANIQA [Concomitant]
     Active Substance: EFLORNITHINE HYDROCHLORIDE
     Indication: HAIR DISORDER
     Dates: start: 201308
  27. BACTRUM [Concomitant]
     Indication: INFECTION
     Dates: start: 201010
  28. VITAMIN D [Concomitant]
     Active Substance: CHOLECALCIFEROL
     Indication: OSTEOPENIA
  29. NEXIUM [Suspect]
     Active Substance: ESOMEPRAZOLE MAGNESIUM
     Indication: GASTROOESOPHAGEAL REFLUX DISEASE
     Route: 048
     Dates: start: 200108
  30. SYNTHROID [Concomitant]
     Active Substance: LEVOTHYROXINE SODIUM
  31. CELEBREX [Concomitant]
     Active Substance: CELECOXIB
     Dosage: 200 MG 1 CAP DAILY PM
     Route: 048
     Dates: end: 201604
  32. CLINDAMYCIN. [Concomitant]
     Active Substance: CLINDAMYCIN
     Dates: start: 201503
  33. HYCODAN [Concomitant]
     Active Substance: HOMATROPINE METHYLBROMIDE\HYDROCODONE BITARTRATE
     Indication: PAIN
     Dates: start: 201001
  34. NEXIUM [Suspect]
     Active Substance: ESOMEPRAZOLE MAGNESIUM
     Indication: GASTROOESOPHAGEAL REFLUX DISEASE
     Route: 048
     Dates: start: 200505
  35. PRILOSEC [Suspect]
     Active Substance: OMEPRAZOLE MAGNESIUM
     Route: 048
  36. PROTONIX [Suspect]
     Active Substance: PANTOPRAZOLE SODIUM
     Route: 065
     Dates: start: 20100120
  37. LISINOPRIL. [Concomitant]
     Active Substance: LISINOPRIL
     Indication: HYPERTENSION
     Dosage: 0.5 RUG TABLET 1 TAB DAILY
     Route: 048
     Dates: start: 201411

REACTIONS (1)
  - Chronic kidney disease [Not Recovered/Not Resolved]

NARRATIVE: CASE EVENT DATE: 201601
